FAERS Safety Report 9000945 (Version 1)
Quarter: 2012Q4

REPORT INFORMATION
  Report Type: Spontaneous
  Country: DE (occurrence: None)
  Receive Date: 20121226
  Receipt Date: 20121226
  Transmission Date: 20130627
  Serious: Yes (Death)
  Sender: FDA-Public Use
  Company Number: B0852296A

PATIENT
  Age: 54 Year
  Sex: Male

DRUGS (13)
  1. MELPHALAN [Suspect]
     Indication: MULTIPLE MYELOMA
  2. ETOPOSIDE [Suspect]
     Indication: MULTIPLE MYELOMA
  3. VINCRISTINE [Suspect]
     Indication: MULTIPLE MYELOMA
     Dates: start: 200604, end: 200606
  4. DOXORUBICIN [Suspect]
     Indication: MULTIPLE MYELOMA
     Dates: start: 200604, end: 200606
  5. DEXAMETHASONE [Suspect]
     Indication: MULTIPLE MYELOMA
  6. THALIDOMIDE [Suspect]
     Indication: MULTIPLE MYELOMA
  7. CYCLOPHOSPHAMIDE [Suspect]
     Indication: MULTIPLE MYELOMA
  8. BORTEZOMIB [Suspect]
     Indication: MULTIPLE MYELOMA
  9. IFOSFAMIDE [Suspect]
     Indication: MULTIPLE MYELOMA
  10. CARBOPLATIN [Suspect]
     Indication: MULTIPLE MYELOMA
  11. LENALIDOMIDE [Suspect]
     Indication: MULTIPLE MYELOMA
  12. FLUDARABINE PHOSPHATE [Suspect]
     Indication: MULTIPLE MYELOMA
  13. TREOSULFAN [Suspect]
     Indication: MULTIPLE MYELOMA

REACTIONS (14)
  - Zygomycosis [None]
  - Plasma cell myeloma recurrent [None]
  - Stem cell transplant [None]
  - Plasma cell myeloma [None]
  - Treatment failure [None]
  - Pain in jaw [None]
  - Periodontitis [None]
  - General physical health deterioration [None]
  - Infective thrombosis [None]
  - Sepsis [None]
  - Cerebral infarction [None]
  - Carotid artery thrombosis [None]
  - Respiratory depression [None]
  - Opportunistic infection [None]
